FAERS Safety Report 23224532 (Version 1)
Quarter: 2023Q4

REPORT INFORMATION
  Report Type: Report from Study
  Country: US (occurrence: US)
  Receive Date: 20231124
  Receipt Date: 20231124
  Transmission Date: 20240110
  Serious: Yes (Other)
  Sender: FDA-Public Use
  Company Number: US-DECIPHERA PHARMACEUTICALS LLC-2023US001032

PATIENT
  Age: 74 Year
  Sex: Male

DRUGS (1)
  1. QINLOCK [Suspect]
     Active Substance: RIPRETINIB
     Indication: Gastrointestinal carcinoma
     Dosage: 150 MILLIGRAM, QD
     Route: 048
     Dates: end: 20231026

REACTIONS (2)
  - Blood iron decreased [Unknown]
  - Fatigue [Unknown]
